FAERS Safety Report 4589560-8 (Version None)
Quarter: 2005Q1

REPORT INFORMATION
  Report Type: 
  Country: None (occurrence: None)
  Receive Date: 20050217
  Receipt Date: 20050210
  Transmission Date: 20050727
  Serious: Yes (Hospitalization)
  Sender: FDA-Public Use
  Company Number: LTI2005A00030

PATIENT
  Age: 56 Year
  Sex: Female

DRUGS (11)
  1. ACTOS [Suspect]
     Indication: CONGENITAL GENERALISED LIPODYSTROPHY
     Dosage: 30 MG 930 MG, 1 IN 1 D) ORAL - DAYS
     Route: 048
     Dates: start: 20031027, end: 20050101
  2. COAPPROVEL (KARVEA HCT) [Concomitant]
  3. AMARYL [Concomitant]
  4. GLUCOPAHGE (METFORMIN HYDROCHLORIDE) [Concomitant]
  5. GLUCOR (ACARBOSE) [Concomitant]
  6. INSULINE NPH PEN (INSULIN INJECTION, ISOPHANE) [Concomitant]
  7. AMLODIPINE BESYLATE [Concomitant]
  8. FENOFIBRATE [Concomitant]
  9. SEROPRAM (CITALOPRAM HYDROBROMIDE) [Concomitant]
  10. ZYLORIC (ALLOPURINOL) [Concomitant]
  11. DIAMICRON (GLICLAZIDE) [Concomitant]

REACTIONS (10)
  - ANTI-PLATELET ANTIBODY POSITIVE [None]
  - AUTONOMIC NEUROPATHY [None]
  - BLOOD IMMUNOGLOBULIN G INCREASED [None]
  - CARDIAC DISORDER [None]
  - HAEMATOCRIT DECREASED [None]
  - HYPERURICAEMIA [None]
  - MICROALBUMINURIA [None]
  - NEPHROPATHY [None]
  - RENAL FAILURE [None]
  - THROMBOCYTOPENIA [None]
